FAERS Safety Report 18054598 (Version 2)
Quarter: 2020Q3

REPORT INFORMATION
  Report Type: Spontaneous
  Country: US (occurrence: US)
  Receive Date: 20200722
  Receipt Date: 20200722
  Transmission Date: 20201103
  Serious: Yes (Other)
  Sender: FDA-Public Use
  Company Number: US-PFIZER INC-2020278676

PATIENT
  Sex: Male

DRUGS (5)
  1. CAMPTOSAR [Suspect]
     Active Substance: IRINOTECAN HYDROCHLORIDE
     Indication: PANCREATIC CARCINOMA
     Dosage: UNK
  2. EMEND [Suspect]
     Active Substance: APREPITANT
     Indication: PANCREATIC CARCINOMA
     Dosage: UNK
  3. ATROPINE SULFATE. [Suspect]
     Active Substance: ATROPINE SULFATE
     Indication: PANCREATIC CARCINOMA
     Dosage: UNK
  4. ALOXI [Suspect]
     Active Substance: PALONOSETRON HYDROCHLORIDE
     Indication: PANCREATIC CARCINOMA
     Dosage: UNK
  5. ELOXATIN [Suspect]
     Active Substance: OXALIPLATIN
     Indication: PANCREATIC CARCINOMA
     Dosage: UNK

REACTIONS (1)
  - Neoplasm progression [Unknown]
